FAERS Safety Report 4312355-7 (Version None)
Quarter: 2004Q1

REPORT INFORMATION
  Report Type: 
  Country: None (occurrence: None)
  Receive Date: 20040304
  Receipt Date: 20040304
  Transmission Date: 20041129
  Serious: Yes (Hospitalization)
  Sender: FDA-Public Use
  Company Number: None

PATIENT
  Age: 56 Year
  Sex: Female

DRUGS (9)
  1. ATORVASTATIN CALCIUM [Suspect]
     Indication: HYPERLIPIDAEMIA
     Dosage: 40 MG ORAL QHS/IN HOSPITAL NO DOCUMENTATION AS FAR AS OUTPATIENT
     Route: 048
     Dates: start: 20031101, end: 20031104
  2. AMLODIPINE [Concomitant]
  3. ATENOLOL [Concomitant]
  4. AUGMENTIN [Concomitant]
  5. TUMS [Concomitant]
  6. PREMARIN [Concomitant]
  7. PEPCID [Concomitant]
  8. FERROUS SULFATE TAB [Concomitant]
  9. LISINOPRIL [Concomitant]

REACTIONS (7)
  - ANAEMIA [None]
  - DEHYDRATION [None]
  - HAEMATURIA [None]
  - HYPERTENSION [None]
  - RENAL FAILURE ACUTE [None]
  - RHABDOMYOLYSIS [None]
  - SYNCOPE [None]
